FAERS Safety Report 23775370 (Version 2)
Quarter: 2024Q3

REPORT INFORMATION
  Report Type: Spontaneous
  Country: JP (occurrence: JP)
  Receive Date: 20240423
  Receipt Date: 20240711
  Transmission Date: 20241017
  Serious: Yes (Other)
  Sender: MERCK
  Company Number: JP-MSD-M2024-07702

PATIENT
  Age: 60 Year
  Sex: Female

DRUGS (4)
  1. KEYTRUDA [Suspect]
     Active Substance: PEMBROLIZUMAB
     Indication: Cervix carcinoma stage II
     Dosage: 200 MILLIGRAM, Q3W
     Route: 041
     Dates: start: 20230131
  2. PACLITAXEL [Suspect]
     Active Substance: PACLITAXEL
     Indication: Cervix carcinoma stage II
     Dosage: 175 MILLIGRAM/SQ. METER, Q3W
     Route: 041
  3. CARBOPLATIN [Suspect]
     Active Substance: CARBOPLATIN
     Indication: Cervix carcinoma stage II
     Dosage: UNK, Q3W
     Route: 041
  4. BEVACIZUMAB [Suspect]
     Active Substance: BEVACIZUMAB
     Indication: Cervix carcinoma stage II
     Dosage: 15 MILLIGRAM/KILOGRAM, Q3W
     Route: 041

REACTIONS (4)
  - Gastrointestinal oedema [Recovering/Resolving]
  - Diarrhoea [Recovering/Resolving]
  - Hypertension [Recovering/Resolving]
  - Head discomfort [Recovered/Resolved]

NARRATIVE: CASE EVENT DATE: 20230925
